FAERS Safety Report 5815771-7 (Version None)
Quarter: 2008Q3

REPORT INFORMATION
  Report Type: 
  Country: None (occurrence: None)
  Receive Date: 20080721
  Receipt Date: 20080715
  Transmission Date: 20090109
  Serious: Yes (Hospitalization)
  Sender: FDA-Public Use
  Company Number: US-ROCHE-563152

PATIENT
  Sex: Male
  Weight: 80 kg

DRUGS (3)
  1. ISOTRETINOIN [Suspect]
     Indication: DRUG USE FOR UNKNOWN INDICATION
     Dosage: PATIENT WAS DISPENSED ACCUTANE 40 MG CAPSULES ON 5/5/2008
     Route: 065
     Dates: start: 20080505, end: 20080507
  2. ASPIRIN [Concomitant]
     Dates: start: 20080506, end: 20080506
  3. PROZAC [Concomitant]
     Indication: DEPRESSION
     Dosage: EVERY MORNING

REACTIONS (1)
  - SUICIDE ATTEMPT [None]
